FAERS Safety Report 7105829-7 (Version None)
Quarter: 2010Q4

REPORT INFORMATION
  Report Type: 
  Country: None (occurrence: None)
  Receive Date: 20101110
  Receipt Date: 20101026
  Transmission Date: 20110411
  Serious: Yes (Hospitalization)
  Sender: FDA-Public Use
  Company Number: OU-10-034-2

PATIENT
  Age: 79 Year
  Sex: Male

DRUGS (2)
  1. CEFTRIAXONE [Suspect]
     Indication: OBSTRUCTIVE AIRWAYS DISORDER
     Dosage: 2 G PER DAY, IV
     Route: 042
  2. IMIPENEM/CILASTATIN [Suspect]
     Indication: OBSTRUCTIVE AIRWAYS DISORDER
     Dosage: 0.5 G, BID,IV
     Route: 042

REACTIONS (8)
  - ANXIETY [None]
  - BLOOD CREATININE INCREASED [None]
  - BODY TEMPERATURE INCREASED [None]
  - CANDIDA TEST POSITIVE [None]
  - ENCEPHALOPATHY [None]
  - IRRITABILITY [None]
  - KLEBSIELLA TEST POSITIVE [None]
  - NERVOUSNESS [None]
